FAERS Safety Report 5590420-4 (Version None)
Quarter: 2008Q1

REPORT INFORMATION
  Report Type: 
  Country: None (occurrence: None)
  Receive Date: 20080114
  Receipt Date: 20070502
  Transmission Date: 20080703
  Serious: No
  Sender: FDA-Public Use
  Company Number: US-ABBOTT-07P-163-0367205-00

PATIENT
  Age: 69 Year
  Sex: Male
  Weight: 109 kg

DRUGS (3)
  1. HYTRIN [Suspect]
     Indication: POLLAKIURIA
     Route: 048
     Dates: start: 19870101
  2. HYTRIN [Suspect]
     Route: 048
  3. GENERIC TERAZOSIN [Suspect]
     Indication: POLLAKIURIA
     Route: 048

REACTIONS (1)
  - POLLAKIURIA [None]
